FAERS Safety Report 8853862 (Version 1)
Quarter: 2012Q4

REPORT INFORMATION
  Report Type: 
  Country: MX (occurrence: MX)
  Receive Date: 20121022
  Receipt Date: 20121022
  Transmission Date: 20130627
  Serious: Yes (Death)
  Sender: FDA-Public Use
  Company Number: PHHY2012MX093673

PATIENT
  Sex: Female

DRUGS (4)
  1. EXELON PATCH [Suspect]
     Indication: VASCULAR DEMENTIA
     Dosage: (9.5 mg/10 cm2), daily
     Route: 062
  2. TEGRETOL [Suspect]
     Indication: CONVULSION
     Dosage: UNK UKN, daily
     Route: 048
  3. INSULIN [Suspect]
  4. ATEMPERATOR [Concomitant]
     Indication: CONVULSION
     Route: 048

REACTIONS (1)
  - Death [Fatal]
